FAERS Safety Report 6092322-6 (Version None)
Quarter: 2009Q1

REPORT INFORMATION
  Report Type: 
  Country: None (occurrence: None)
  Receive Date: 20090219
  Receipt Date: 20081126
  Transmission Date: 20090719
  Serious: No
  Sender: FDA-Public Use
  Company Number: WAES 0812USA00019

PATIENT
  Age: 74 Year
  Sex: Female

DRUGS (10)
  1. JANUVIA [Suspect]
     Indication: DIABETES MELLITUS
     Dosage: 100 MG/DAILY/PO ;100 MG/DAILY/PO
     Route: 048
     Dates: start: 20081101, end: 20081101
  2. JANUVIA [Suspect]
     Indication: DIABETES MELLITUS
     Dosage: 100 MG/DAILY/PO ;100 MG/DAILY/PO
     Route: 048
     Dates: start: 20080925, end: 20081106
  3. PRANDIN [Concomitant]
  4. TYLENOL [Concomitant]
  5. ALBUTEROL [Concomitant]
  6. AMLODIPINE [Concomitant]
  7. ASPIRIN [Concomitant]
  8. FUROSEMIDE [Concomitant]
  9. GLYBURIDE [Concomitant]
  10. LISINOPRIL [Concomitant]

REACTIONS (2)
  - LIP SWELLING [None]
  - RASH [None]
